FAERS Safety Report 4456144-1 (Version None)
Quarter: 2004Q3

REPORT INFORMATION
  Report Type: 
  Country: None (occurrence: None)
  Receive Date: 20040920
  Receipt Date: 20040906
  Transmission Date: 20050211
  Serious: Yes (Hospitalization)
  Sender: FDA-Public Use
  Company Number: 2004063171

PATIENT
  Age: 45 Year
  Sex: Male

DRUGS (1)
  1. ZELDOX (CAPSULES) (ZIPRASIDONE) [Suspect]
     Indication: ILL-DEFINED DISORDER
     Dosage: 1400 MG (20 MG, ONCE), ORAL
     Route: 048

REACTIONS (1)
  - OVERDOSE [None]
